FAERS Safety Report 20355128 (Version 2)
Quarter: 2022Q1

REPORT INFORMATION
  Report Type: Spontaneous
  Country: JP (occurrence: JP)
  Receive Date: 20220120
  Receipt Date: 20220302
  Transmission Date: 20220423
  Serious: Yes (Hospitalization)
  Sender: FDA-Public Use
  Company Number: JP-GLAXOSMITHKLINE-JP2022JPN008321

PATIENT
  Age: 28 Year
  Sex: Female

DRUGS (2)
  1. SUMATRIPTAN SUCCINATE [Suspect]
     Active Substance: SUMATRIPTAN SUCCINATE
     Indication: Migraine
     Dosage: UNK, PRN TWICE OR MORE A DAY
  2. LOXOPROFEN SODIUM [Suspect]
     Active Substance: LOXOPROFEN SODIUM
     Indication: Migraine
     Dosage: UNK UNK, PRN TWICE OR MORE A DAY

REACTIONS (4)
  - Medication overuse headache [Recovering/Resolving]
  - Headache [Recovering/Resolving]
  - Dysmenorrhoea [Unknown]
  - Pain [Unknown]
